FAERS Safety Report 7347187-9 (Version None)
Quarter: 2011Q1

REPORT INFORMATION
  Report Type: 
  Country: None (occurrence: None)
  Receive Date: 20110311
  Receipt Date: 20110307
  Transmission Date: 20110831
  Serious: Yes (Hospitalization, Other)
  Sender: FDA-Public Use
  Company Number: JP-PFIZER INC-2011038968

PATIENT
  Age: 60 Year
  Sex: Male

DRUGS (10)
  1. LOXONIN [Concomitant]
     Dosage: UNK
     Route: 048
  2. NORVASC [Concomitant]
     Dosage: 5 MG, 1X/DAY
     Route: 048
  3. KETOPROFEN [Concomitant]
     Route: 062
  4. DEPAS [Suspect]
     Dosage: 0.5 MG, 3X/DAY
     Route: 048
  5. BLOPRESS [Concomitant]
     Dosage: 8 MG, 1X/DAY
     Route: 048
  6. ALLEGRA [Concomitant]
     Dosage: 60 MG, 2X/DAY
     Route: 048
  7. VENA PASTA [Concomitant]
     Dosage: UNK
     Route: 062
  8. LYRICA [Suspect]
     Dosage: UNK
     Route: 048
     Dates: start: 20110212
  9. SERMION [Suspect]
     Dosage: 5 MG, 3X/DAY
     Route: 048
  10. CYTOTEC [Concomitant]
     Dosage: 200 MG, 3X/DAY
     Route: 048

REACTIONS (4)
  - RADIUS FRACTURE [None]
  - PAIN IN EXTREMITY [None]
  - DIZZINESS [None]
  - FALL [None]
